FAERS Safety Report 21961318 (Version 1)
Quarter: 2023Q1

REPORT INFORMATION
  Report Type: Report from Study
  Country: CA (occurrence: CA)
  Receive Date: 20230207
  Receipt Date: 20230207
  Transmission Date: 20230418
  Serious: Yes (Death)
  Sender: FDA-Public Use
  Company Number: CA-BAYER-2023A013752

PATIENT
  Sex: Male

DRUGS (1)
  1. EYLEA [Suspect]
     Active Substance: AFLIBERCEPT
     Indication: Diabetic retinal oedema
     Dosage: AFFECTED EYE, DOSE, FREQUENCY OR TOTAL NUMBER OF INJECTIONS WAS NOT REPORTED, SOLUTION FOR INJECTION
     Dates: start: 20161104

REACTIONS (1)
  - Death [Fatal]
